FAERS Safety Report 4601018-6 (Version None)
Quarter: 2005Q1

REPORT INFORMATION
  Report Type: 
  Country: None (occurrence: None)
  Receive Date: 20050304
  Receipt Date: 20050304
  Transmission Date: 20050727
  Serious: Yes (Other)
  Sender: FDA-Public Use
  Company Number: None

PATIENT

DRUGS (1)
  1. ULTRAVIST 300 [Suspect]
     Dosage: 125 ML

REACTIONS (2)
  - CONJUNCTIVAL IRRITATION [None]
  - NASAL CONGESTION [None]
